FAERS Safety Report 5376537-8 (Version None)
Quarter: 2007Q2

REPORT INFORMATION
  Report Type: 
  Country: None (occurrence: None)
  Receive Date: 20070629
  Receipt Date: 20070620
  Transmission Date: 20071010
  Serious: Yes (Other)
  Sender: FDA-Public Use
  Company Number: CIP07001153

PATIENT
  Sex: Female

DRUGS (5)
  1. ACTONEL [Suspect]
     Indication: OSTEOPOROSIS
     Dosage: 35 MG ONCE WEEKLY, ORAL
     Route: 048
     Dates: start: 20061204, end: 20061220
  2. TOPAMAX [Concomitant]
  3. LAMICTAL [Concomitant]
  4. GEODON [Concomitant]
  5. DISPRIN (ACETYLSALICYLIC ACID) [Concomitant]

REACTIONS (2)
  - CONDITION AGGRAVATED [None]
  - EPILEPSY [None]
